FAERS Safety Report 10214995 (Version 1)
Quarter: 2014Q2

REPORT INFORMATION
  Report Type: Spontaneous
  Country: CH (occurrence: CH)
  Receive Date: 20140603
  Receipt Date: 20140603
  Transmission Date: 20141212
  Serious: Yes (Other)
  Sender: FDA-Public Use
  Company Number: CH-ACTAVIS-2014-11344

PATIENT
  Age: 0 Year
  Sex: Female
  Weight: 2 kg

DRUGS (1)
  1. VALACICLOVIR (UNKNOWN) [Suspect]
     Indication: GENITAL HERPES
     Dosage: 500 MG, DAILY
     Route: 064
     Dates: start: 2013

REACTIONS (8)
  - Neonatal asphyxia [Unknown]
  - Convulsion neonatal [Unknown]
  - Epilepsy [Unknown]
  - Foetal growth restriction [Recovered/Resolved]
  - Pseudocyst [Unknown]
  - Apgar score low [Unknown]
  - Exposure during pregnancy [Recovered/Resolved]
  - Premature separation of placenta [Unknown]
